FAERS Safety Report 7802208-1 (Version None)
Quarter: 2011Q4

REPORT INFORMATION
  Report Type: 
  Country: None (occurrence: None)
  Receive Date: 20111007
  Receipt Date: 20110929
  Transmission Date: 20120403
  Serious: No
  Sender: FDA-Public Use
  Company Number: US-B.I. PHARMACEUTICALS,INC./RIDGEFIELD-2011-BP-23175BP

PATIENT
  Age: 75 Year
  Sex: Female

DRUGS (8)
  1. POTASSIUM [Concomitant]
     Indication: SUPPLEMENTATION THERAPY
  2. CARDIZEM CD [Concomitant]
     Indication: HYPERTENSION
     Dosage: 360 MG
  3. XANAX [Concomitant]
     Indication: ANXIETY
  4. CLONIDINE [Concomitant]
     Indication: INSOMNIA
     Dosage: 0.1 MG
  5. ATACAND [Concomitant]
     Indication: HYPERTENSION
     Dosage: 64 MG
  6. TEKTURNA [Concomitant]
     Indication: HYPERTENSION
     Dosage: 300 MG
  7. PRADAXA [Suspect]
     Indication: ATRIAL FIBRILLATION
     Dosage: 300 MG
     Route: 048
     Dates: start: 20110106
  8. BYSTOLIC [Concomitant]
     Indication: HYPERTENSION
     Dosage: 10 MG

REACTIONS (4)
  - RASH MACULAR [None]
  - DIZZINESS [None]
  - HEADACHE [None]
  - ABDOMINAL DISCOMFORT [None]
